FAERS Safety Report 12461879 (Version 1)
Quarter: 2016Q2

REPORT INFORMATION
  Report Type: Spontaneous
  Country: US (occurrence: US)
  Receive Date: 20160613
  Receipt Date: 20160613
  Transmission Date: 20160815
  Serious: No
  Sender: FDA-Public Use
  Company Number: GXBR2016US001481

PATIENT
  Sex: Female

DRUGS (1)
  1. GLATOPA [Suspect]
     Active Substance: GLATIRAMER ACETATE
     Indication: PRODUCT USED FOR UNKNOWN INDICATION
     Dosage: UNK DF, UNK
     Route: 065

REACTIONS (9)
  - Memory impairment [Unknown]
  - Head discomfort [Unknown]
  - Injury [Unknown]
  - Fatigue [Unknown]
  - Tremor [Unknown]
  - Burning sensation [Unknown]
  - Amnesia [Unknown]
  - Paraesthesia [Unknown]
  - Fall [Unknown]
